FAERS Safety Report 18618610 (Version 1)
Quarter: 2020Q4

REPORT INFORMATION
  Report Type: Spontaneous
  Country: US (occurrence: US)
  Receive Date: 20201215
  Receipt Date: 20201215
  Transmission Date: 20210114
  Serious: No
  Sender: FDA-Public Use
  Company Number: US-009507513-2012USA004160

PATIENT
  Age: 76 Year
  Sex: Male

DRUGS (1)
  1. KEYTRUDA [Suspect]
     Active Substance: PEMBROLIZUMAB
     Indication: COLON CANCER
     Dosage: 68 MILLIGRAM, Q 21 DAYS
     Route: 042

REACTIONS (4)
  - Incorrect dosage administered [Unknown]
  - Vascular access complication [Unknown]
  - Hypertension [Unknown]
  - Poor venous access [Unknown]
